FAERS Safety Report 6801518-4 (Version None)
Quarter: 2010Q2

REPORT INFORMATION
  Report Type: 
  Country: None (occurrence: None)
  Receive Date: 20100629
  Receipt Date: 20100617
  Transmission Date: 20101027
  Serious: Yes (Hospitalization)
  Sender: FDA-Public Use
  Company Number: US-ELI_LILLY_AND_COMPANY-US201006005373

PATIENT
  Sex: Female

DRUGS (16)
  1. FORTEO [Suspect]
     Indication: OSTEOPOROSIS
     Dosage: 20 UG, DAILY (1/D)
  2. HYDROCODONE [Concomitant]
     Dosage: 5 MG, EVERY 6 HRS
  3. METOCLOPRAMIDE [Concomitant]
     Dosage: 10 MG, 3/D
  4. NEXIUM [Concomitant]
     Dosage: 40 MG, DAILY (1/D)
  5. METOPROLOL [Concomitant]
     Dosage: 50 MG, EACH EVENING
  6. NITROGLYCERIN [Concomitant]
  7. MULTI-VITAMIN [Concomitant]
     Dosage: UNK, DAILY (1/D)
  8. SLOW-K [Concomitant]
     Dosage: 8 MG, DAILY (1/D)
  9. ARIMIDEX [Concomitant]
     Dosage: UNK, EACH EVENING
  10. CALCITRIOL [Concomitant]
     Dosage: 5 MG, AS NEEDED
  11. ASPIRIN [Concomitant]
     Dosage: 81 MG, DAILY (1/D)
  12. VICODIN [Concomitant]
     Dosage: 10 MG, EVERY 6 HRS
  13. ADVAIR DISKUS 100/50 [Concomitant]
     Dosage: UNK, 2/D
  14. PROAIR HFA [Concomitant]
     Route: 055
  15. LISINOPRIL [Concomitant]
     Dosage: 5 MG, DAILY (1/D)
  16. CALCIUM CITRATE W/VITAMIN D NOS [Concomitant]
     Dosage: UNK, DAILY (1/D)

REACTIONS (2)
  - LUNG INFECTION [None]
  - PNEUMONIA [None]
